FAERS Safety Report 5787932-7 (Version None)
Quarter: 2008Q2

REPORT INFORMATION
  Report Type: 
  Country: None (occurrence: None)
  Receive Date: 20080625
  Receipt Date: 20080619
  Transmission Date: 20081010
  Serious: Yes (Congenital Anomaly)
  Sender: FDA-Public Use
  Company Number: B0523326A

PATIENT
  Sex: Male
  Weight: 2.6 kg

DRUGS (8)
  1. DEROXAT [Suspect]
     Dosage: 20MG PER DAY
     Dates: start: 20061117, end: 20070723
  2. LAMICTAL [Suspect]
     Dosage: 50MG TWICE PER DAY
     Dates: start: 20061117, end: 20070723
  3. COPEGUS [Suspect]
     Dosage: 200MG FOUR TIMES PER DAY
     Dates: start: 20061117
  4. DEPAKENE [Suspect]
     Dosage: 500MG TWICE PER DAY
     Dates: start: 20061117, end: 20070723
  5. PEGYLATED INTERFERON ALPHA 2B [Suspect]
     Dates: start: 20061117, end: 20070723
  6. LEVOTHYROXINE SODIUM [Concomitant]
     Dosage: 75UG PER DAY
     Dates: start: 20061117, end: 20070723
  7. ACETAMINOPHEN [Concomitant]
     Dates: start: 20061117, end: 20070723
  8. CYSTINE B6 [Concomitant]
     Dates: start: 20061117, end: 20070723

REACTIONS (5)
  - CRANIOSYNOSTOSIS [None]
  - DRUG EXPOSURE DURING PREGNANCY [None]
  - HYPOTELORISM OF ORBIT [None]
  - OLIGOHYDRAMNIOS [None]
  - SKULL MALFORMATION [None]
